FAERS Safety Report 6580120-6 (Version None)
Quarter: 2010Q1

REPORT INFORMATION
  Report Type: 
  Country: None (occurrence: None)
  Receive Date: 20100212
  Receipt Date: 20100201
  Transmission Date: 20100710
  Serious: Yes (Hospitalization, Other)
  Sender: FDA-Public Use
  Company Number: US-PFIZER INC-2010014376

PATIENT
  Sex: Female
  Weight: 54.48 kg

DRUGS (13)
  1. ZOLOFT [Suspect]
  2. PROPYLTHIOURACIL [Suspect]
  3. PRISTIQ [Suspect]
     Indication: DEPRESSION
     Dosage: 50 MG, 1X/DAY
     Route: 048
     Dates: start: 20090726, end: 20090801
  4. CIPROFLOXACIN [Suspect]
  5. L-THYROXIN [Suspect]
  6. LEXAPRO [Suspect]
  7. AMITRIPTYLINE [Suspect]
  8. PERPHENAZINE AND AMITRIPTYLINE HCL [Suspect]
  9. KLONOPIN [Concomitant]
     Indication: ANXIETY
  10. SEROQUEL [Concomitant]
     Indication: DEPRESSION
     Dosage: 12.5 MG, AS NEEDED
  11. LEVOTHYROXINE [Concomitant]
     Indication: HYPOTHYROIDISM
     Dosage: 82 UG, 1X/DAY
  12. AMLODIPINE [Concomitant]
     Indication: HYPERTENSION
  13. PROPRANOLOL [Concomitant]

REACTIONS (9)
  - ACTIVITIES OF DAILY LIVING IMPAIRED [None]
  - CYSTITIS [None]
  - DECREASED APPETITE [None]
  - DEPRESSED MOOD [None]
  - DRUG INTOLERANCE [None]
  - NAUSEA [None]
  - NERVOUSNESS [None]
  - TREMOR [None]
  - UNEVALUABLE EVENT [None]
